FAERS Safety Report 8055070-9 (Version None)
Quarter: 2012Q1

REPORT INFORMATION
  Report Type: 
  Country: None (occurrence: None)
  Receive Date: 20120119
  Receipt Date: 20120117
  Transmission Date: 20120608
  Serious: Yes (Hospitalization)
  Sender: FDA-Public Use
  Company Number: DE-BAYER-2012-005316

PATIENT
  Age: 46 Year
  Sex: Female
  Weight: 63 kg

DRUGS (2)
  1. AVELOX [Suspect]
     Indication: PNEUMONIA
     Dosage: 400 MG, QD
     Dates: start: 20111209, end: 20111210
  2. ACETYLCYSTEINE [Suspect]
     Dosage: UNK
     Dates: start: 20111209, end: 20111210

REACTIONS (6)
  - FEELING COLD [None]
  - PERIPHERAL COLDNESS [None]
  - DIZZINESS [None]
  - MYOCARDITIS [None]
  - HEAD DISCOMFORT [None]
  - TREMOR [None]
